FAERS Safety Report 20338100 (Version 2)
Quarter: 2022Q1

REPORT INFORMATION
  Report Type: Spontaneous
  Country: GB (occurrence: GB)
  Receive Date: 20220115
  Receipt Date: 20220325
  Transmission Date: 20220424
  Serious: Yes (Other)
  Sender: FDA-Public Use
  Company Number: GB-LUPIN PHARMACEUTICALS INC.-2022-00117

PATIENT
  Age: 47 Year
  Sex: Female

DRUGS (3)
  1. COLESEVELAM HYDROCHLORIDE [Suspect]
     Active Substance: COLESEVELAM HYDROCHLORIDE
     Indication: Bile acid malabsorption
     Dosage: 625 MILLIGRAM, 2-3 TIMES DAILY
     Route: 065
  2. COLESEVELAM HYDROCHLORIDE [Suspect]
     Active Substance: COLESEVELAM HYDROCHLORIDE
     Dosage: 625 MILLIGRAM
     Route: 065
  3. INSULIN NOS [Concomitant]
     Active Substance: INSULIN NOS
     Indication: Type 1 diabetes mellitus
     Dosage: INSULIN PUMP THERAPY; AVERAGE TOTAL DAILY INSULIN DOSAGE 45.2 IU (0.72 IU/KG)
     Route: 065

REACTIONS (2)
  - Hypoglycaemia [Recovered/Resolved]
  - Constipation [Unknown]
